FAERS Safety Report 4317218-9 (Version None)
Quarter: 2004Q1

REPORT INFORMATION
  Report Type: 
  Country: None (occurrence: None)
  Receive Date: 20040312
  Receipt Date: 20040227
  Transmission Date: 20041129
  Serious: Yes (Hospitalization, Other)
  Sender: FDA-Public Use
  Company Number: HQWYE447227FEB04

PATIENT
  Age: 55 Year
  Sex: Female

DRUGS (3)
  1. NORGESTREL AND ETHINYL ESTRADIOL [Suspect]
     Indication: ABDOMINAL PAIN LOWER
     Dosage: 1 TABLET DAILY
     Route: 048
     Dates: start: 20020101, end: 20020430
  2. NORGESTREL AND ETHINYL ESTRADIOL [Suspect]
     Indication: METRORRHAGIA
     Dosage: 1 TABLET DAILY
     Route: 048
     Dates: start: 20020101, end: 20020430
  3. NASANYL (NAFARELIN ACETATE) [Suspect]
     Indication: HORMONE REPLACEMENT THERAPY
     Dates: start: 19960101

REACTIONS (10)
  - CHEST PAIN [None]
  - DEEP VEIN THROMBOSIS [None]
  - DYSPNOEA [None]
  - LOSS OF CONSCIOUSNESS [None]
  - MEDICAL DEVICE COMPLICATION [None]
  - OEDEMA PERIPHERAL [None]
  - PALPITATIONS [None]
  - PROCEDURAL COMPLICATION [None]
  - PULMONARY EMBOLISM [None]
  - THROMBOSIS [None]
